FAERS Safety Report 25487573 (Version 1)
Quarter: 2025Q2

REPORT INFORMATION
  Report Type: Spontaneous
  Country: US (occurrence: US)
  Receive Date: 20250627
  Receipt Date: 20250627
  Transmission Date: 20250717
  Serious: Yes (Hospitalization)
  Sender: ARGENX BVBA
  Company Number: US-ARGENX-2025-ARGX-US008122

PATIENT

DRUGS (1)
  1. VYVGART [Suspect]
     Active Substance: EFGARTIGIMOD ALFA-FCAB
     Indication: Chronic inflammatory demyelinating polyradiculoneuropathy
     Route: 065

REACTIONS (2)
  - Walking disability [Unknown]
  - Condition aggravated [Unknown]
